FAERS Safety Report 24860873 (Version 1)
Quarter: 2025Q1

REPORT INFORMATION
  Report Type: Spontaneous
  Country: JP (occurrence: JP)
  Receive Date: 20250120
  Receipt Date: 20250120
  Transmission Date: 20250408
  Serious: Yes (Death, Other)
  Sender: ASTELLAS
  Company Number: JP-ASTELLAS-2024-AER-009247

PATIENT
  Age: 8 Decade
  Sex: Female

DRUGS (4)
  1. VYLOY [Suspect]
     Active Substance: ZOLBETUXIMAB-CLZB
     Indication: Gastric cancer
     Route: 065
     Dates: start: 20240920
  2. FLUOROURACIL [Concomitant]
     Active Substance: FLUOROURACIL
     Indication: Gastric cancer
     Route: 065
  3. LEVOLEUCOVORIN CALCIUM [Concomitant]
     Active Substance: LEVOLEUCOVORIN CALCIUM
     Indication: Gastric cancer
     Route: 065
  4. OXALIPLATIN [Concomitant]
     Active Substance: OXALIPLATIN
     Indication: Gastric cancer
     Route: 065

REACTIONS (5)
  - Death [Fatal]
  - Gastrointestinal perforation [Unknown]
  - Nausea [Recovered/Resolved]
  - Decreased appetite [Unknown]
  - Vomiting [Recovered/Resolved]

NARRATIVE: CASE EVENT DATE: 20240920
